FAERS Safety Report 25549134 (Version 1)
Quarter: 2025Q3

REPORT INFORMATION
  Report Type: Spontaneous
  Country: US (occurrence: US)
  Receive Date: 20250714
  Receipt Date: 20250714
  Transmission Date: 20251020
  Serious: Yes (Other)
  Sender: ELI LILLY AND COMPANY
  Company Number: US-ELI_LILLY_AND_COMPANY-US202507003980

PATIENT
  Age: 62 Year
  Sex: Female

DRUGS (1)
  1. HUMALOG [Suspect]
     Active Substance: INSULIN LISPRO
     Indication: Diabetes mellitus
     Route: 065
     Dates: start: 2010

REACTIONS (5)
  - Diabetes mellitus inadequate control [Recovered/Resolved]
  - Hepatic cirrhosis [Unknown]
  - Glycosylated haemoglobin increased [Recovered/Resolved]
  - Mobility decreased [Recovered/Resolved]
  - Illness [Recovered/Resolved]

NARRATIVE: CASE EVENT DATE: 20220101
